FAERS Safety Report 24864065 (Version 1)
Quarter: 2025Q1

REPORT INFORMATION
  Report Type: Spontaneous
  Country: US (occurrence: US)
  Receive Date: 20250120
  Receipt Date: 20250120
  Transmission Date: 20250409
  Serious: Yes (Hospitalization, Other)
  Sender: GRIFOLS
  Company Number: US-IGSA-BIG0032446

PATIENT
  Age: 64 Year
  Sex: Female

DRUGS (4)
  1. XEMBIFY [Suspect]
     Active Substance: HUMAN IMMUNOGLOBULIN G
     Indication: Product used for unknown indication
     Dosage: UNK UNK, Q.WK.
     Route: 058
     Dates: start: 20241224, end: 20241224
  2. XEMBIFY [Suspect]
     Active Substance: HUMAN IMMUNOGLOBULIN G
     Dosage: UNK UNK, Q.WK.
     Route: 058
     Dates: start: 202410, end: 202501
  3. XEMBIFY [Suspect]
     Active Substance: HUMAN IMMUNOGLOBULIN G
     Dosage: UNK UNK, Q.WK.
     Route: 058
     Dates: start: 20241230, end: 20241230
  4. XEMBIFY [Suspect]
     Active Substance: HUMAN IMMUNOGLOBULIN G
     Dosage: UNK UNK, Q.WK.
     Route: 058
     Dates: start: 202501, end: 202501

REACTIONS (8)
  - Infusion site swelling [Not Recovered/Not Resolved]
  - Infusion site pain [Recovered/Resolved]
  - Diverticulitis [Not Recovered/Not Resolved]
  - Infusion site pruritus [Unknown]
  - Inflammation [Recovering/Resolving]
  - Mobility decreased [Not Recovered/Not Resolved]
  - Tenderness [Recovering/Resolving]
  - Neuralgia [Unknown]

NARRATIVE: CASE EVENT DATE: 20241224
